FAERS Safety Report 14558919 (Version 2)
Quarter: 2018Q1

REPORT INFORMATION
  Report Type: Report from Study
  Country: CR (occurrence: CR)
  Receive Date: 20180221
  Receipt Date: 20180329
  Transmission Date: 20180509
  Serious: Yes (Other)
  Sender: FDA-Public Use
  Company Number: PHHY2018CR016652

PATIENT
  Age: 69 Year
  Sex: Female

DRUGS (3)
  1. LOSARTAN. [Concomitant]
     Active Substance: LOSARTAN
     Indication: HYPERTENSION
     Route: 065
  2. METFORMIN [Concomitant]
     Active Substance: METFORMIN HYDROCHLORIDE
     Indication: DIABETES MELLITUS
     Route: 065
  3. SANDOSTATIN LAR DEPOT [Suspect]
     Active Substance: OCTREOTIDE ACETATE
     Indication: ACROMEGALY
     Dosage: UNK
     Route: 065

REACTIONS (6)
  - Uterine enlargement [Unknown]
  - Infection [Unknown]
  - Nasopharyngitis [Unknown]
  - Pneumonia [Recovered/Resolved]
  - Feeling abnormal [Unknown]
  - Vaginal haemorrhage [Unknown]
